FAERS Safety Report 23346097 (Version 1)
Quarter: 2023Q4

REPORT INFORMATION
  Report Type: Spontaneous
  Country: US (occurrence: None)
  Receive Date: 20231227
  Receipt Date: 20231227
  Transmission Date: 20240110
  Serious: No
  Sender: FDA-Public Use
  Company Number: None

PATIENT
  Age: 38 Year
  Sex: Female

DRUGS (1)
  1. ENTYVIO [Suspect]
     Active Substance: VEDOLIZUMAB
     Indication: Colitis ulcerative
     Dosage: OTHER FREQUENCY : EVERY8WEEKS ;?
     Dates: start: 20230501

REACTIONS (2)
  - Condition aggravated [None]
  - Colitis ulcerative [None]

NARRATIVE: CASE EVENT DATE: 20231206
